FAERS Safety Report 7286543-4 (Version None)
Quarter: 2011Q1

REPORT INFORMATION
  Report Type: 
  Country: None (occurrence: None)
  Receive Date: 20110210
  Receipt Date: 20110202
  Transmission Date: 20110831
  Serious: Yes (Other)
  Sender: FDA-Public Use
  Company Number: ES-ROCHE-757967

PATIENT
  Age: 89 Year
  Sex: Female

DRUGS (2)
  1. MIRCERA [Suspect]
     Dosage: DOSE: 75 (UNITS NOT PROVIDED)
     Route: 058
     Dates: start: 20080101, end: 20090101
  2. MIRCERA [Suspect]
     Route: 058
     Dates: start: 20100101, end: 20100101

REACTIONS (1)
  - PEMPHIGOID [None]
